FAERS Safety Report 5276107-6 (Version None)
Quarter: 2007Q1

REPORT INFORMATION
  Report Type: 
  Country: None (occurrence: None)
  Receive Date: 20070326
  Receipt Date: 20070314
  Transmission Date: 20070707
  Serious: Yes (Other)
  Sender: FDA-Public Use
  Company Number: 2007AP01659

PATIENT
  Age: 64 Year
  Sex: Male

DRUGS (1)
  1. NOLVADEX [Suspect]
     Indication: BREAST CANCER MALE
     Route: 048

REACTIONS (1)
  - PROSTATE CANCER [None]
